FAERS Safety Report 5465226-7 (Version None)
Quarter: 2007Q3

REPORT INFORMATION
  Report Type: 
  Country: None (occurrence: None)
  Receive Date: 20070924
  Receipt Date: 20070912
  Transmission Date: 20080115
  Serious: Yes (Hospitalization, Other)
  Sender: FDA-Public Use
  Company Number: PHHO2007CL15180

PATIENT
  Age: 55 Year
  Sex: Female

DRUGS (4)
  1. TAREG [Suspect]
     Indication: HYPERTENSION
     Dosage: 160 MG, QD
     Route: 048
     Dates: start: 20070101
  2. CARVEDILOL [Concomitant]
  3. AMLODIPINE [Concomitant]
  4. CEFALMIN [Concomitant]

REACTIONS (2)
  - THYROID CANCER [None]
  - THYROID OPERATION [None]
